FAERS Safety Report 5301918-8 (Version None)
Quarter: 2007Q2

REPORT INFORMATION
  Report Type: 
  Country: None (occurrence: None)
  Receive Date: 20070419
  Receipt Date: 20070411
  Transmission Date: 20071010
  Serious: Yes (Death, Other)
  Sender: FDA-Public Use
  Company Number: RU-AVENTIS-200710507EU

PATIENT
  Age: 86 Year
  Sex: Male
  Weight: 81 kg

DRUGS (7)
  1. CLEXANE [Suspect]
     Route: 058
     Dates: start: 20070109, end: 20070115
  2. CLEXANE [Suspect]
     Route: 058
     Dates: start: 20070116, end: 20070116
  3. RENITEC                            /00574901/ [Concomitant]
     Indication: HYPERTENSION
     Route: 048
     Dates: start: 20070109, end: 20070116
  4. NIFECARD                           /00340701/ [Concomitant]
     Indication: HYPERTENSION
     Route: 048
     Dates: start: 20070109, end: 20070116
  5. DETRALEX [Concomitant]
     Dosage: DOSE: 2 TABLETS
     Route: 048
     Dates: start: 20070109, end: 20070116
  6. CORDARONE [Concomitant]
     Route: 048
     Dates: start: 20070112, end: 20070116
  7. CIPROFLOXACIN [Concomitant]
     Route: 042
     Dates: start: 20070115, end: 20070116

REACTIONS (2)
  - HAEMATOMA [None]
  - MYOCARDIAL INFARCTION [None]
